FAERS Safety Report 5465608-3 (Version None)
Quarter: 2007Q3

REPORT INFORMATION
  Report Type: 
  Country: None (occurrence: None)
  Receive Date: 20070919
  Receipt Date: 20070919
  Transmission Date: 20080115
  Serious: Yes (Other)
  Sender: FDA-Public Use
  Company Number: None

PATIENT
  Sex: Male
  Weight: 21.2 kg

DRUGS (2)
  1. VYVANSE [Suspect]
     Indication: ATTENTION DEFICIT/HYPERACTIVITY DISORDER
     Dosage: 30 MG CAPSULE Q DAY PO
     Route: 048
     Dates: start: 20070813, end: 20070813
  2. CELEXA [Concomitant]

REACTIONS (4)
  - AGITATION [None]
  - EYE SWELLING [None]
  - PSYCHOMOTOR HYPERACTIVITY [None]
  - TARDIVE DYSKINESIA [None]
